FAERS Safety Report 7269937-2 (Version None)
Quarter: 2011Q1

REPORT INFORMATION
  Report Type: 
  Country: None (occurrence: None)
  Receive Date: 20110202
  Receipt Date: 20110126
  Transmission Date: 20110831
  Serious: Yes (Hospitalization)
  Sender: FDA-Public Use
  Company Number: JP-ROCHE-720625

PATIENT
  Sex: Male
  Weight: 53 kg

DRUGS (26)
  1. MAGNESIUM OXIDE [Concomitant]
     Dosage: FORM: PERORAL AGENT. TAKEN AS NEEDED.
     Route: 048
     Dates: start: 20100614
  2. FLUNITRAZEPAM [Concomitant]
     Route: 042
     Dates: start: 20100615, end: 20100616
  3. ERBITUX [Suspect]
     Indication: GASTRIC CANCER
     Dosage: ROUTE: INTRAVENOUS (NOT OTHERWISE SPECIFIED). DOSAGE IS UNCERTAIN.
     Route: 042
     Dates: start: 20100614, end: 20100819
  4. ACETAMINOPHEN [Concomitant]
     Dosage: FORM: PERORAL AGENT. TAKEN AS NEEDED.
     Route: 048
     Dates: start: 20100605, end: 20100608
  5. MELOXICAM [Concomitant]
     Dosage: FORM: PERORAL AGENT
     Route: 048
     Dates: start: 20100614
  6. CAPECITABINE [Suspect]
     Dosage: 2 WEEKS ADMINISTRATION FOLLOWED BY 1 WEEK REST.
     Route: 048
     Dates: start: 20100101, end: 20100826
  7. VITAMIN A [Concomitant]
     Dosage: FORM: OINTMENT AND CREAM. TAKEN AS NEEDED.
     Route: 061
     Dates: start: 20100614
  8. WHITE PETROLATUM [Concomitant]
     Dosage: FORM: OINTMENT AND CREAM. TAKEN AS NEEDED.
     Route: 061
     Dates: start: 20100614
  9. TEPRENONE [Concomitant]
     Dosage: FROM: PERORAL AGENT.  DOSAGE IS UNCERTAIN
     Route: 048
  10. OXYCODONE HYDROCHLORIDE [Concomitant]
     Dosage: FORM: PERORAL AGENT. TAKEN AS NEEDED.
     Route: 048
     Dates: start: 20100605
  11. FERROUS SULFATE TAB [Concomitant]
     Dosage: FORM: PERORAL AGENT
     Route: 048
     Dates: start: 20100607
  12. THROMBIN LOCAL SOLUTION [Concomitant]
     Dosage: FORM: PERORAL AGENT
     Route: 048
     Dates: start: 20100605, end: 20100611
  13. OXYCODONE HYDROCHLORIDE [Concomitant]
     Route: 048
     Dates: start: 20100606, end: 20100611
  14. CISPLATIN [Suspect]
     Indication: GASTRIC CANCER
     Dosage: ROUTE: INTRAVENOUS (NOT OTHERWISE SPECIFIED). DOSAGE IS UNCERTAIN.
     Route: 042
     Dates: start: 20100614, end: 20100819
  15. MARZULENE-S [Concomitant]
     Dosage: FORM: PERORAL AGENT
     Route: 048
     Dates: start: 20100514, end: 20100604
  16. SODIUM ALGINATE [Concomitant]
     Dosage: FORM: PERORAL AGENT
     Route: 048
     Dates: start: 20100605, end: 20100611
  17. CAPECITABINE [Suspect]
     Indication: GASTRIC CANCER
     Dosage: 2 WEEKS ADMINISTRATION FOLLOWED BY 1 WEEK REST.
     Route: 048
     Dates: start: 20100614, end: 20100729
  18. PROCHLORPERAZINE [Concomitant]
     Dosage: FORM: PERORAL AGENT
     Route: 048
     Dates: start: 20100606
  19. LANSOPRAZOLE [Concomitant]
     Dosage: ROUTE: INTRAVENOUS (NOT OTHERWISE SPECIFIED)
     Route: 042
     Dates: start: 20100605, end: 20100605
  20. LANSOPRAZOLE [Concomitant]
     Dosage: DOSE FORM: PERORAL AGENT
     Route: 048
     Dates: start: 20100609
  21. LANSOPRAZOLE [Concomitant]
     Route: 042
     Dates: start: 20100606, end: 20100608
  22. HIRUDOID [Concomitant]
     Dosage: FORM: OINTMENT AND CREAM
     Route: 061
     Dates: start: 20100614
  23. LOXOPROFEN [Concomitant]
     Dosage: FORM: PERORAL AGENT
     Route: 048
     Dates: start: 20100504, end: 20100604
  24. BROTIZOLAM [Concomitant]
     Dosage: FORM: PERORAL AGENT. TAKEN AS NEEDED.
     Route: 048
     Dates: start: 20100606, end: 20100613
  25. FLUNITRAZEPAM [Concomitant]
     Dosage: ROUTE: INTRAVENOUS (NOT OTHERWISE SPECIFIED)
     Route: 042
     Dates: start: 20100508, end: 20100608
  26. DICLOFENAC [Concomitant]
     Dosage: FORM REPORTED AS UNCERTAINTY. TAKEN AS NEEDED.
     Route: 054
     Dates: start: 20100514, end: 20100604

REACTIONS (2)
  - CEREBRAL INFARCTION [None]
  - JAUNDICE CHOLESTATIC [None]
